FAERS Safety Report 6641619-7 (Version None)
Quarter: 2010Q1

REPORT INFORMATION
  Report Type: 
  Country: None (occurrence: None)
  Receive Date: 20100317
  Receipt Date: 20100317
  Transmission Date: 20100710
  Serious: No
  Sender: FDA-Public Use
  Company Number: None

PATIENT
  Sex: Female
  Weight: 81.1939 kg

DRUGS (2)
  1. AMOXICILLIN AND CLAVULANATE POTASSIUM [Suspect]
     Indication: PHARYNGITIS BACTERIAL
     Dosage: 1 TABLET 3X DAY FOR 10 DAYS
     Dates: start: 20100205, end: 20100208
  2. AMOXICILLIN AND CLAVULANATE POTASSIUM [Suspect]
     Indication: SINUSITIS BACTERIAL
     Dosage: 1 TABLET 3X DAY FOR 10 DAYS
     Dates: start: 20100205, end: 20100208

REACTIONS (3)
  - PAIN [None]
  - SCRATCH [None]
  - URTICARIA [None]
